FAERS Safety Report 8915975 (Version 1)
Quarter: 2012Q4

REPORT INFORMATION
  Report Type: 
  Country: US (occurrence: US)
  Receive Date: 20121119
  Receipt Date: 20121119
  Transmission Date: 20130627
  Serious: Yes (Other)
  Sender: FDA-Public Use
  Company Number: US-GLAXOSMITHKLINE-A1000748A

PATIENT
  Age: 15 Year
  Sex: Female

DRUGS (4)
  1. LAMOTRIGINE [Suspect]
     Indication: CONVULSION
     Dosage: 150MG Twice per day
     Route: 048
  2. LAMICTAL [Suspect]
     Indication: CONVULSION
  3. KEPPRA [Concomitant]
  4. UNSPECIFIED MEDICATION [Concomitant]

REACTIONS (2)
  - Grand mal convulsion [Recovered/Resolved]
  - Convulsion [Unknown]
